FAERS Safety Report 7032499-9 (Version None)
Quarter: 2010Q4

REPORT INFORMATION
  Report Type: 
  Country: None (occurrence: None)
  Receive Date: 20101007
  Receipt Date: 20100928
  Transmission Date: 20110411
  Serious: Yes (Other)
  Sender: FDA-Public Use
  Company Number: US-JNJFOC-20101000369

PATIENT
  Age: 54 Year
  Sex: Female

DRUGS (8)
  1. TOPAMAX [Suspect]
     Indication: PAIN PROPHYLAXIS
     Route: 048
  2. TOPAMAX [Suspect]
     Route: 048
  3. TOPIRAMATE [Suspect]
     Indication: PAIN PROPHYLAXIS
     Route: 048
  4. LISINOPRIL [Suspect]
     Indication: SLEEP DISORDER
     Route: 065
  5. GABAPENTIN [Concomitant]
     Indication: SLEEP DISORDER
     Route: 065
  6. PROPRANOLOL [Concomitant]
     Indication: PAIN PROPHYLAXIS
     Route: 065
  7. BUTALBITAL [Concomitant]
     Route: 065
  8. SUMATRIPTAN SUCCINATE [Concomitant]
     Route: 065

REACTIONS (1)
  - BURNING MOUTH SYNDROME [None]
